FAERS Safety Report 23985402 (Version 2)
Quarter: 2024Q3

REPORT INFORMATION
  Report Type: Spontaneous
  Country: US (occurrence: US)
  Receive Date: 20240618
  Receipt Date: 20240718
  Transmission Date: 20241017
  Serious: No
  Sender: CALLIDITAS THERAPEUTICS
  Company Number: US-Calliditas-2024CAL01014

PATIENT
  Age: 35 Year
  Sex: Male
  Weight: 79 kg

DRUGS (1)
  1. TARPEYO [Suspect]
     Active Substance: BUDESONIDE
     Indication: IgA nephropathy
     Route: 048
     Dates: start: 20240514

REACTIONS (3)
  - Flatulence [Unknown]
  - Abdominal distension [Unknown]
  - Product residue present [Unknown]

NARRATIVE: CASE EVENT DATE: 20240705
